FAERS Safety Report 4691425-8 (Version None)
Quarter: 2005Q2

REPORT INFORMATION
  Report Type: 
  Country: None (occurrence: None)
  Receive Date: 20050615
  Receipt Date: 20050606
  Transmission Date: 20051028
  Serious: Yes (Hospitalization)
  Sender: FDA-Public Use
  Company Number: NYVW-PR-0506S-0026

PATIENT
  Age: 73 Year
  Sex: Female

DRUGS (2)
  1. MYOVIEW [Suspect]
     Dosage: 214.6 MBQ, SINGLE DOSE, I.V.
     Route: 042
     Dates: start: 20050602, end: 20050602
  2. TECHNETIUM (TC99M) (GENRATOR [Concomitant]

REACTIONS (2)
  - ELECTROCARDIOGRAM ST SEGMENT DEPRESSION [None]
  - NAUSEA [None]
